FAERS Safety Report 20446448 (Version 3)
Quarter: 2022Q1

REPORT INFORMATION
  Report Type: Spontaneous
  Country: US (occurrence: US)
  Receive Date: 20220208
  Receipt Date: 20220316
  Transmission Date: 20220423
  Serious: No
  Sender: FDA-Public Use
  Company Number: US-BAUSCH-BL-2022-003037

PATIENT
  Age: 87 Year
  Sex: Female

DRUGS (1)
  1. NEOMYCIN AND POLYMYXIN B SULFATES AND HYDROCORTISONE [Suspect]
     Active Substance: HYDROCORTISONE\NEOMYCIN SULFATE\POLYMYXIN B SULFATE
     Indication: Ear infection
     Dosage: 2 DROPS 3 TIMES IN A DAY IN HER RIGHT EAR
     Route: 001

REACTIONS (3)
  - Ear discomfort [Not Recovered/Not Resolved]
  - Instillation site pain [Not Recovered/Not Resolved]
  - Drug ineffective [Unknown]
